FAERS Safety Report 4930960-1 (Version None)
Quarter: 2006Q1

REPORT INFORMATION
  Report Type: 
  Country: None (occurrence: None)
  Receive Date: 20060127
  Receipt Date: 20051021
  Transmission Date: 20060701
  Serious: Yes (Other)
  Sender: FDA-Public Use
  Company Number: 2005146376

PATIENT
  Age: 44 Year
  Sex: Female

DRUGS (5)
  1. LYRICA [Suspect]
     Indication: ILL-DEFINED DISORDER
     Dosage: 50 MG ( 1 IN 1 D)
     Route: 065
  2. ALL OTHER THERAPEUTIC PRODUCTS (ALL OTHER THERAPEUTIC PRODUCTS) [Concomitant]
  3. ROXICODONE [Concomitant]
  4. CYMBALTA [Concomitant]
  5. ZANTAC [Concomitant]

REACTIONS (2)
  - NAUSEA [None]
  - VOMITING [None]
